FAERS Safety Report 12116337 (Version 1)
Quarter: 2016Q1

REPORT INFORMATION
  Report Type: Spontaneous
  Country: US (occurrence: US)
  Receive Date: 20160225
  Receipt Date: 20160225
  Transmission Date: 20160526
  Serious: No
  Sender: FDA-Public Use
  Company Number: US-MYLANLABS-2015M1044937

PATIENT
  Sex: Male

DRUGS (1)
  1. VANCOMYCIN [Suspect]
     Active Substance: VANCOMYCIN
     Indication: LOCALISED INFECTION
     Dosage: 100 MG, OVER 60 MINUTES VIA PICC LINE
     Route: 042
     Dates: start: 20151103

REACTIONS (1)
  - Red man syndrome [Unknown]

NARRATIVE: CASE EVENT DATE: 20151119
